FAERS Safety Report 10260856 (Version 2)
Quarter: 2014Q2

REPORT INFORMATION
  Report Type: Spontaneous
  Country: FR (occurrence: FR)
  Receive Date: 20140626
  Receipt Date: 20140626
  Transmission Date: 20141212
  Serious: Yes (Hospitalization, Other)
  Sender: FDA-Public Use
  Company Number: FR-ASTRAZENECA-2014SE44103

PATIENT
  Age: 27598 Day
  Sex: Female

DRUGS (4)
  1. INEXIUM [Suspect]
     Indication: GASTROOESOPHAGEAL REFLUX PROPHYLAXIS
     Route: 048
     Dates: start: 20140127, end: 20140227
  2. METHOTREXATE [Suspect]
     Indication: RHEUMATOID ARTHRITIS
     Dosage: 1 TIME DAILY (LIKELY BELLON SPECIALITY), SIX TIMES 2.5 MG, THUS, 15 MG A WEEK
     Route: 048
     Dates: start: 2009, end: 20140227
  3. PROFENID [Suspect]
     Route: 048
     Dates: start: 1979
  4. LOVENOX [Concomitant]
     Dosage: 4000 IU ANTI-XA/0.4 ML

REACTIONS (7)
  - Agranulocytosis [Recovering/Resolving]
  - Femur fracture [Unknown]
  - Pancytopenia [Recovering/Resolving]
  - C-reactive protein increased [Unknown]
  - Escherichia test positive [Unknown]
  - Mouth haemorrhage [Unknown]
  - Skin ulcer [Unknown]
